FAERS Safety Report 6411183-6 (Version None)
Quarter: 2009Q4

REPORT INFORMATION
  Report Type: 
  Country: None (occurrence: None)
  Receive Date: 20091019
  Receipt Date: 20091007
  Transmission Date: 20100525
  Serious: Yes (Other)
  Sender: FDA-Public Use
  Company Number: 2009SP029238

PATIENT
  Age: 60 Year
  Sex: Female
  Weight: 56 kg

DRUGS (6)
  1. REMERON [Suspect]
     Indication: DRUG USE FOR UNKNOWN INDICATION
     Dosage: 30 MG; QD; PO
     Route: 048
     Dates: start: 20090901
  2. ZYPREXA [Suspect]
     Indication: DRUG USE FOR UNKNOWN INDICATION
     Dosage: 10 MG; ONCE; PO, 20 MG; QD; PO
     Route: 048
     Dates: start: 20090910, end: 20090910
  3. ZYPREXA [Suspect]
     Indication: DRUG USE FOR UNKNOWN INDICATION
     Dosage: 10 MG; ONCE; PO, 20 MG; QD; PO
     Route: 048
     Dates: start: 20090911
  4. LORAZEPAM [Suspect]
     Indication: DRUG USE FOR UNKNOWN INDICATION
     Dosage: 1 MG; QD; PO
     Route: 048
     Dates: start: 20090723
  5. SEROQUEL [Suspect]
     Indication: DRUG USE FOR UNKNOWN INDICATION
     Dosage: 300 MG; QD;
     Dates: start: 20090817, end: 20090909
  6. CYMBALTA [Concomitant]

REACTIONS (9)
  - ASTHENIA [None]
  - BALANCE DISORDER [None]
  - DYSSTASIA [None]
  - FALL [None]
  - FEMORAL NECK FRACTURE [None]
  - FLUID INTAKE REDUCED [None]
  - MALNUTRITION [None]
  - PAIN IN EXTREMITY [None]
  - PERICARDIAL EFFUSION [None]
